FAERS Safety Report 4552146-5 (Version None)
Quarter: 2004Q4

REPORT INFORMATION
  Report Type: 
  Country: None (occurrence: None)
  Receive Date: 20041217
  Receipt Date: 20040820
  Transmission Date: 20050328
  Serious: No
  Sender: FDA-Public Use
  Company Number: 2004-P-05915BP

PATIENT
  Age: 80 Year
  Sex: Female

DRUGS (10)
  1. SPIRIVA [Suspect]
     Indication: CHRONIC OBSTRUCTIVE AIRWAYS DISEASE
     Dosage: 18 MCG (18 MCG), IH
     Route: 055
     Dates: start: 20040618
  2. SPIRIVA [Suspect]
     Indication: EMPHYSEMA
  3. CA SUPPLEMENTS [Concomitant]
  4. CENTRUM (CENTRUM) [Concomitant]
  5. ISOPTIN [Concomitant]
  6. LESCOL [Concomitant]
  7. QUININE (QUININE) [Concomitant]
  8. FOSAMAX [Concomitant]
  9. ALBUTEROL [Concomitant]
  10. AZMACORT [Concomitant]

REACTIONS (2)
  - DRY MOUTH [None]
  - TONGUE BLISTERING [None]
